FAERS Safety Report 6126641-1 (Version None)
Quarter: 2009Q1

REPORT INFORMATION
  Report Type: 
  Country: None (occurrence: None)
  Receive Date: 20090320
  Receipt Date: 20090309
  Transmission Date: 20090719
  Serious: Yes (Death, Other)
  Sender: FDA-Public Use
  Company Number: JP-PFIZER INC-2009180905

PATIENT

DRUGS (11)
  1. TOPOTECIN [Suspect]
     Indication: SMALL CELL LUNG CANCER STAGE UNSPECIFIED
     Dosage: 90 MG, (90 MG), INTERMITTENT 1/14, 1/21
     Route: 041
     Dates: start: 20090114, end: 20090121
  2. PARAPLATIN [Suspect]
     Dosage: 500 MG, DOSE SCHEDULE: INTERMITTENT 1X/DAY
     Route: 041
     Dates: start: 20090114, end: 20090114
  3. KYTRIL [Concomitant]
     Indication: PROPHYLAXIS OF NAUSEA AND VOMITING
     Dosage: 3 MG (3 MG), 1X/DAY
     Route: 041
     Dates: start: 20090114, end: 20090114
  4. KYTRIL [Concomitant]
     Dosage: 3 MG, 1X/DAY
     Route: 041
     Dates: start: 20090121, end: 20090121
  5. DECADRON [Concomitant]
     Indication: PROPHYLAXIS OF NAUSEA AND VOMITING
     Dosage: 16 MG, 1X/DAY
     Route: 041
     Dates: start: 20090114, end: 20090114
  6. DECADRON [Concomitant]
     Dosage: 8 MG, 1X/DAY
     Route: 041
     Dates: start: 20090121, end: 20090121
  7. LOXONIN [Concomitant]
     Indication: CANCER PAIN
     Dosage: UNK
     Route: 048
     Dates: start: 20090105, end: 20090201
  8. MORPHINE HYDROCHLORIDE [Concomitant]
     Indication: CANCER PAIN
     Dosage: 10 MG, 1X/DAY
     Route: 048
     Dates: start: 20090106, end: 20090223
  9. MORPHINE HYDROCHLORIDE [Concomitant]
     Route: 042
  10. WARFARIN [Concomitant]
     Indication: ATRIAL FIBRILLATION
     Dosage: 2 MG, 1X/DAY
     Route: 048
     Dates: end: 20090201
  11. ARTIST [Concomitant]
     Indication: ATRIAL FIBRILLATION
     Dosage: 10 MG, 1X/DAY
     Route: 048
     Dates: end: 20090201

REACTIONS (3)
  - DIARRHOEA [None]
  - NEUTROPENIA [None]
  - THROMBOCYTOPENIA [None]
